FAERS Safety Report 5922161-5 (Version None)
Quarter: 2008Q4

REPORT INFORMATION
  Report Type: 
  Country: None (occurrence: None)
  Receive Date: 20081017
  Receipt Date: 20081006
  Transmission Date: 20090506
  Serious: Yes (Hospitalization)
  Sender: FDA-Public Use
  Company Number: CZ-WYE-H05248308

PATIENT
  Sex: Female
  Weight: 64 kg

DRUGS (5)
  1. ADVIL ULTRA [Suspect]
     Indication: PYREXIA
     Dosage: UNKNOWN
     Route: 065
     Dates: start: 20080419
  2. SUNITINIB MALATE [Suspect]
     Indication: BREAST CANCER
     Dosage: 37.5 MG PER DAY 2 TO 14 EVERY 3 WEEKS
     Route: 048
     Dates: start: 20080321
  3. ACETAMINOPHEN [Suspect]
     Indication: PYREXIA
     Dosage: UNKNOWN
     Route: 048
     Dates: start: 20080419
  4. NEUPOGEN [Suspect]
     Indication: CHEMOTHERAPY
     Dosage: UNKNOWN DOSE IN PREFILLED SYRINGE
     Route: 058
     Dates: start: 20080417, end: 20080419
  5. DOCETAXEL [Suspect]
     Dosage: 130 MG (75 MG/M2,1 IN 3 WEEKS)
     Route: 042
     Dates: start: 20080320

REACTIONS (4)
  - ASTHENIA [None]
  - BRONCHOPNEUMONIA [None]
  - DEHYDRATION [None]
  - INFLUENZA LIKE ILLNESS [None]
